FAERS Safety Report 21702319 (Version 1)
Quarter: 2022Q4

REPORT INFORMATION
  Report Type: Spontaneous
  Country: BR (occurrence: BR)
  Receive Date: 20221208
  Receipt Date: 20221208
  Transmission Date: 20230113
  Serious: Yes (Hospitalization)
  Sender: FDA-Public Use
  Company Number: BR-JNJFOC-20220948549

PATIENT
  Age: 34 Year
  Sex: Female

DRUGS (5)
  1. SPRAVATO [Suspect]
     Active Substance: ESKETAMINE
     Indication: Depression
  2. SPRAVATO [Suspect]
     Active Substance: ESKETAMINE
     Indication: Suicidal behaviour
  3. SPRAVATO [Suspect]
     Active Substance: ESKETAMINE
     Indication: Borderline personality disorder
  4. SPRAVATO [Suspect]
     Active Substance: ESKETAMINE
  5. PHENOBARBITAL [Suspect]
     Active Substance: PHENOBARBITAL
     Indication: Suicide attempt
     Dosage: 5 VIALS
     Route: 048

REACTIONS (4)
  - Suicide attempt [Recovering/Resolving]
  - Depression [Recovering/Resolving]
  - Food craving [Recovered/Resolved]
  - Dissociation [Recovering/Resolving]
